FAERS Safety Report 13540606 (Version 1)
Quarter: 2017Q2

REPORT INFORMATION
  Report Type: Spontaneous
  Country: US (occurrence: US)
  Receive Date: 20170512
  Receipt Date: 20170512
  Transmission Date: 20170830
  Serious: Yes (Hospitalization)
  Sender: FDA-Public Use
  Company Number: US-PFIZER INC-2017205597

PATIENT
  Sex: Female

DRUGS (1)
  1. LYRICA [Suspect]
     Active Substance: PREGABALIN
     Dosage: 400 MG, DAILY

REACTIONS (3)
  - Aggression [Unknown]
  - Neuropathy peripheral [Not Recovered/Not Resolved]
  - Dementia Alzheimer^s type [Unknown]
